FAERS Safety Report 18526870 (Version 2)
Quarter: 2021Q2

REPORT INFORMATION
  Report Type: Spontaneous
  Country: DE (occurrence: DE)
  Receive Date: 20201120
  Receipt Date: 20210611
  Transmission Date: 20210717
  Serious: Yes (Life-Threatening, Hospitalization)
  Sender: FDA-Public Use
  Company Number: DE-TEVA-2020-DE-1850039

PATIENT
  Age: 59 Year
  Sex: Male

DRUGS (6)
  1. TORASEMID [Concomitant]
     Active Substance: TORSEMIDE
     Dosage: 2 DOSAGE FORMS DAILY; 10 MG, 2?0?0?0
  2. TACROLIMUS. [Suspect]
     Active Substance: TACROLIMUS
     Dosage: 2 MILLIGRAM DAILY; 1 MG, 1?0?1?0
  3. SPIRIVA [Concomitant]
     Active Substance: TIOTROPIUM BROMIDE MONOHYDRATE
     Dosage: 2 DOSAGE FORMS DAILY; 2?0?0?0
     Route: 055
  4. VIANI [Concomitant]
     Active Substance: FLUTICASONE PROPIONATE\SALMETEROL XINAFOATE
     Dosage: 2 DOSAGE FORMS DAILY; 2?0?0?0
     Route: 055
  5. COLECALCIFEROL (VITAMIN D) [Concomitant]
     Active Substance: CHOLECALCIFEROL
     Dosage: 20000 IU / WEEK, 1X
  6. IPRAMOL [Concomitant]
     Active Substance: ALBUTEROL SULFATE\IPRATROPIUM BROMIDE
     Dosage: 4 DOSAGE FORMS DAILY; 1?1?1?1
     Route: 055

REACTIONS (5)
  - Atrial fibrillation [Unknown]
  - Arrhythmia [Unknown]
  - Dyspnoea [Unknown]
  - Cough [Unknown]
  - Productive cough [Unknown]
